FAERS Safety Report 7137108-6 (Version None)
Quarter: 2010Q4

REPORT INFORMATION
  Report Type: 
  Country: None (occurrence: None)
  Receive Date: 20101206
  Receipt Date: 20090420
  Transmission Date: 20110411
  Serious: Yes (Death)
  Sender: FDA-Public Use
  Company Number: US-ACTELION-A-US2006-16861

PATIENT

DRUGS (8)
  1. ILOPROST INHALATION SOLUTION 2.5UG US [Suspect]
     Indication: PULMONARY ARTERIAL HYPERTENSION
     Dosage: 2.5 UG, 4 X DAY
     Route: 055
     Dates: start: 20060531
  2. ACTIGALL [Concomitant]
  3. ALDACTONE [Concomitant]
  4. FERROUS SULFATE [Concomitant]
  5. LASIX [Concomitant]
  6. NADOLOL [Concomitant]
  7. PRILOSEC [Concomitant]
  8. TYLENOL-500 [Concomitant]

REACTIONS (4)
  - ASTHENIA [None]
  - DEATH [None]
  - FATIGUE [None]
  - SYNCOPE [None]
